FAERS Safety Report 9642113 (Version 3)
Quarter: 2014Q1

REPORT INFORMATION
  Report Type: Report from Study
  Country: DE (occurrence: DE)
  Receive Date: 20131023
  Receipt Date: 20140127
  Transmission Date: 20141002
  Serious: Yes (Hospitalization)
  Sender: FDA-Public Use
  Company Number: DE-ROCHE-1292470

PATIENT
  Age: 65 Year
  Sex: Male
  Weight: 103 kg

DRUGS (6)
  1. BEVACIZUMAB [Suspect]
     Indication: COLORECTAL CANCER METASTATIC
     Dosage: LAST DOSE PRIOR TO THE EVENT WAS GIVEN ON 10-OCT-2013
     Route: 042
     Dates: start: 20130919, end: 20131010
  2. CAPECITABINE [Suspect]
     Indication: PRODUCT USED FOR UNKNOWN INDICATION
     Route: 048
     Dates: start: 20130919, end: 201310
  3. IRINOTECAN [Suspect]
     Indication: PRODUCT USED FOR UNKNOWN INDICATION
     Route: 042
     Dates: start: 20130919, end: 20131010
  4. RAMIPRIL [Concomitant]
     Indication: HYPERTENSION
     Route: 048
     Dates: start: 20130919
  5. BELOC-ZOK [Concomitant]
     Indication: HYPERTENSION
     Route: 048
     Dates: start: 20130919
  6. GLIBENCLAMID [Concomitant]
     Indication: DIABETES MELLITUS
     Route: 048

REACTIONS (7)
  - General physical health deterioration [Recovered/Resolved]
  - Dysphagia [Unknown]
  - Stomatitis [Recovered/Resolved]
  - Pancytopenia [Recovered/Resolved]
  - Hyperkalaemia [Recovered/Resolved]
  - Renal failure acute [Recovered/Resolved]
  - Diarrhoea [Recovered/Resolved]
